FAERS Safety Report 5163496-6 (Version None)
Quarter: 2006Q4

REPORT INFORMATION
  Report Type: 
  Country: None (occurrence: None)
  Receive Date: 20061124
  Receipt Date: 20061110
  Transmission Date: 20070319
  Serious: Yes (Other)
  Sender: FDA-Public Use
  Company Number: 2006139319

PATIENT
  Age: 4 Year
  Sex: Male

DRUGS (1)
  1. GEODON [Suspect]
     Dosage: (20 MG)

REACTIONS (2)
  - HAIR GROWTH ABNORMAL [None]
  - PETIT MAL EPILEPSY [None]
